FAERS Safety Report 9531949 (Version 2)
Quarter: 2013Q4

REPORT INFORMATION
  Report Type: Not Available
  Country: FR (occurrence: FR)
  Receive Date: 20130918
  Receipt Date: 20131204
  Transmission Date: 20140711
  Serious: Yes (Hospitalization)
  Sender: FDA-Public Use
  Company Number: FR-NAPPMUNDI-GBR-2013-0015625

PATIENT
  Age: 81 Year
  Sex: Male

DRUGS (14)
  1. OXYNORM 5 MG, GELULE [Suspect]
     Indication: PRODUCT USED FOR UNKNOWN INDICATION
     Dosage: 5 MG, PRN
     Route: 048
     Dates: start: 20130617, end: 20130622
  2. GENTAMICINE [Suspect]
     Indication: STAPHYLOCOCCAL SEPSIS
     Dosage: 210 MG, DAILY, BOLUS
     Route: 042
     Dates: start: 20130616, end: 20130619
  3. DIFFU K [Suspect]
     Indication: PRODUCT USED FOR UNKNOWN INDICATION
     Dosage: 1200 MG, DAILY
     Dates: start: 20130613, end: 20130620
  4. MOVICOL /01625101/ [Suspect]
     Indication: PRODUCT USED FOR UNKNOWN INDICATION
     Dosage: 1 DF, BID
     Route: 048
     Dates: start: 20130617, end: 20130622
  5. OFLOCET /00731801/ [Suspect]
     Dosage: 200 MG, TID
     Route: 048
     Dates: start: 20130621, end: 20130702
  6. TERCIAN /00759301/ [Suspect]
     Indication: PRODUCT USED FOR UNKNOWN INDICATION
     Dosage: 10 GTT, DAILY
     Route: 048
     Dates: start: 20130615, end: 20130629
  7. ORBENINE [Suspect]
     Indication: PRODUCT USED FOR UNKNOWN INDICATION
     Dosage: 2 G, QID
     Route: 042
     Dates: start: 20130616, end: 20130626
  8. ACUPAN [Suspect]
     Indication: PRODUCT USED FOR UNKNOWN INDICATION
     Dosage: 20 MG, TID
     Route: 042
     Dates: start: 20130612, end: 20130620
  9. LOVENOX [Suspect]
     Indication: PRODUCT USED FOR UNKNOWN INDICATION
     Dosage: 10 MG DAILY, BOLUS
     Route: 058
     Dates: start: 20130612, end: 20130708
  10. CETIRIZINE [Suspect]
     Indication: PRODUCT USED FOR UNKNOWN INDICATION
     Dosage: 10 MG, DAILY
     Route: 048
     Dates: start: 20130622, end: 20130705
  11. PREDNISONE [Concomitant]
  12. DILTIAZEM [Concomitant]
  13. ESOMEPRAZOLE [Concomitant]
  14. KARDEGIC [Concomitant]

REACTIONS (3)
  - Purpura [Recovered/Resolved]
  - Tendonitis [Recovering/Resolving]
  - Oedema peripheral [Recovering/Resolving]
